FAERS Safety Report 5821159-5 (Version None)
Quarter: 2008Q3

REPORT INFORMATION
  Report Type: 
  Country: None (occurrence: None)
  Receive Date: 20080721
  Receipt Date: 20080708
  Transmission Date: 20090109
  Serious: Yes (Death)
  Sender: FDA-Public Use
  Company Number: 030303

PATIENT
  Age: 17 Year
  Sex: Female
  Weight: 50.8 kg

DRUGS (2)
  1. CLARAVIS [Suspect]
     Indication: ACNE CYSTIC
     Dosage: 40 MG, QOD, ORAL; 80 MG, QOD, ORAL
     Route: 048
     Dates: start: 20080624
  2. CLARAVIS [Suspect]
     Indication: ACNE CYSTIC
     Dosage: 40 MG, QOD, ORAL; 80 MG, QOD, ORAL
     Route: 048
     Dates: start: 20080624

REACTIONS (1)
  - DROWNING [None]
